FAERS Safety Report 5467927-3 (Version None)
Quarter: 2007Q3

REPORT INFORMATION
  Report Type: 
  Country: None (occurrence: None)
  Receive Date: 20070924
  Receipt Date: 20070914
  Transmission Date: 20080115
  Serious: Yes (Other)
  Sender: FDA-Public Use
  Company Number: 2007-03041

PATIENT
  Age: 69 Year
  Sex: Female
  Weight: 37 kg

DRUGS (10)
  1. VELCADE [Suspect]
     Indication: MULTIPLE MYELOMA
     Dosage: 1.10 MG, INTRAVENOUS
     Route: 042
     Dates: start: 20070814, end: 20070824
  2. DEXAMETHASONE TAB [Suspect]
     Indication: MULTIPLE MYELOMA
     Dosage: 20.00 MG, INTRAVENOUS
     Route: 042
     Dates: start: 20070814
  3. JUVELA (TOCOPHEROL) [Concomitant]
  4. TAGAMET [Concomitant]
  5. PRAVASTATIN [Concomitant]
  6. ADONA (CARBAZOCHROME SODIUM SULFONATE) [Concomitant]
  7. LENDORMIN (BROTIZOLAM) [Concomitant]
  8. DIFLUCAN [Concomitant]
  9. BAKTAR (SULFAMETHOXAZOLE, TRIMETHOPRIM) [Concomitant]
  10. FUNGIZONE [Concomitant]

REACTIONS (4)
  - ALANINE AMINOTRANSFERASE INCREASED [None]
  - BLOOD UREA INCREASED [None]
  - C-REACTIVE PROTEIN INCREASED [None]
  - HYPERTENSION [None]
